FAERS Safety Report 25608707 (Version 1)
Quarter: 2025Q3

REPORT INFORMATION
  Report Type: Spontaneous
  Country: RU (occurrence: RU)
  Receive Date: 20250726
  Receipt Date: 20250726
  Transmission Date: 20251020
  Serious: Yes (Hospitalization)
  Sender: NOVITIUM PHARMA
  Company Number: RU-NOVITIUMPHARMA-2025RUNVP01776

PATIENT
  Age: 54 Year
  Sex: Female

DRUGS (3)
  1. MESALAMINE [Suspect]
     Active Substance: MESALAMINE
     Indication: Colitis ulcerative
  2. MONTMORILLONITE [Concomitant]
     Active Substance: MONTMORILLONITE
     Indication: Colitis ulcerative
  3. Saccharomyces-boulardii [Concomitant]
     Indication: Colitis ulcerative

REACTIONS (2)
  - Hyperchromic anaemia [Unknown]
  - Intentional product misuse [Unknown]
